FAERS Safety Report 8486159-8 (Version None)
Quarter: 2012Q3

REPORT INFORMATION
  Report Type: 
  Country: None (occurrence: None)
  Receive Date: 20120703
  Receipt Date: 20120628
  Transmission Date: 20120928
  Serious: Yes (Other)
  Sender: FDA-Public Use
  Company Number: BR-PFIZER INC-2012156678

PATIENT
  Age: 43 Year
  Sex: Male

DRUGS (2)
  1. LIPANON [Concomitant]
     Indication: BLOOD TRIGLYCERIDES INCREASED
     Dosage: 250 MG, UNK
  2. LIPITOR [Suspect]
     Indication: BLOOD CHOLESTEROL INCREASED
     Dosage: 20 MG (ONE TABLET), 1X/DAY
     Route: 048
     Dates: start: 20120625

REACTIONS (7)
  - HIGH DENSITY LIPOPROTEIN DECREASED [None]
  - LOW DENSITY LIPOPROTEIN INCREASED [None]
  - BLOOD TRIGLYCERIDES INCREASED [None]
  - CHROMATURIA [None]
  - ARTHRALGIA [None]
  - BLOOD CHOLESTEROL INCREASED [None]
  - URINE ODOUR ABNORMAL [None]
